FAERS Safety Report 18033674 (Version 1)
Quarter: 2020Q3

REPORT INFORMATION
  Report Type: Spontaneous
  Country: US (occurrence: US)
  Receive Date: 20200717
  Receipt Date: 20200717
  Transmission Date: 20201103
  Serious: No
  Sender: FDA-Public Use
  Company Number: US-NOVAST LABORATORIES LTD.-2019NOV000022

PATIENT
  Age: 21 Year
  Sex: Female

DRUGS (2)
  1. TRI?LINYAH [Suspect]
     Active Substance: ETHINYL ESTRADIOL\NORGESTIMATE
     Indication: MENORRHAGIA
  2. TRI?LINYAH [Suspect]
     Active Substance: ETHINYL ESTRADIOL\NORGESTIMATE
     Indication: ORAL CONTRACEPTION
     Dosage: UNK
     Route: 065
     Dates: start: 20190802

REACTIONS (7)
  - Product use in unapproved indication [Unknown]
  - Diarrhoea [Unknown]
  - Product dose omission issue [Unknown]
  - Abdominal distension [Unknown]
  - Inappropriate schedule of product administration [Unknown]
  - Abdominal pain [Unknown]
  - Malaise [Unknown]

NARRATIVE: CASE EVENT DATE: 20190802
